FAERS Safety Report 8389830-1 (Version None)
Quarter: 2012Q2

REPORT INFORMATION
  Report Type: 
  Country: None (occurrence: None)
  Receive Date: 20120523
  Receipt Date: 20120511
  Transmission Date: 20120825
  Serious: Yes (Hospitalization)
  Sender: FDA-Public Use
  Company Number: 2012SP025246

PATIENT
  Age: 52 Year
  Sex: Male

DRUGS (3)
  1. PEGINTERFERON ALFA-2A [Suspect]
     Indication: HEPATITIS C
     Dosage: 180 MCG;QW;SC
     Route: 058
     Dates: start: 20111203
  2. BOCEPREVIR (SCH-503034) [Suspect]
     Indication: HEPATITIS C
     Dosage: 2400 MG;QD;PO
     Route: 048
     Dates: start: 20111231
  3. RIBAVIRIN [Suspect]
     Indication: HEPATITIS C
     Dosage: 1000 MG;QD;PO
     Route: 048
     Dates: start: 20111203

REACTIONS (12)
  - BLOOD POTASSIUM DECREASED [None]
  - HEPATIC CIRRHOSIS [None]
  - KIDNEY ENLARGEMENT [None]
  - HAEMOGLOBIN DECREASED [None]
  - BLOOD UREA INCREASED [None]
  - BLOOD CREATININE INCREASED [None]
  - SPLENOMEGALY [None]
  - ASCITES [None]
  - CELLULITIS [None]
  - BLOOD CHLORIDE DECREASED [None]
  - PYREXIA [None]
  - PORTAL HYPERTENSION [None]
